FAERS Safety Report 4788043-X (Version None)
Quarter: 2005Q3

REPORT INFORMATION
  Report Type: 
  Country: None (occurrence: None)
  Receive Date: 20050914
  Receipt Date: 20050806
  Transmission Date: 20060218
  Serious: Yes (Other)
  Sender: FDA-Public Use
  Company Number: 413516

PATIENT
  Sex: Female

DRUGS (3)
  1. BONIVA [Suspect]
  2. PREMARIN [Concomitant]
  3. CLARITIN-D [Concomitant]

REACTIONS (4)
  - PHOTOSENSITIVITY REACTION [None]
  - POISONING [None]
  - RASH [None]
  - RASH PAPULAR [None]
